FAERS Safety Report 9291570 (Version 2)
Quarter: 2013Q2

REPORT INFORMATION
  Report Type: Report from Study
  Country: JP (occurrence: JP)
  Receive Date: 20130515
  Receipt Date: 20130522
  Transmission Date: 20140414
  Serious: Yes (Other)
  Sender: FDA-Public Use
  Company Number: JP-GLAXOSMITHKLINE-B0888147A

PATIENT
  Age: 25 Year
  Sex: Female

DRUGS (4)
  1. VOTRIENT [Suspect]
     Indication: SOFT TISSUE CANCER
     Dosage: 800MG PER DAY
     Route: 048
     Dates: start: 20130318, end: 20130402
  2. VOTRIENT [Suspect]
     Indication: SOFT TISSUE CANCER
     Dosage: 600MG PER DAY
     Route: 048
     Dates: start: 20130403, end: 20130407
  3. VOTRIENT [Suspect]
     Indication: SOFT TISSUE CANCER
     Dosage: 400MG PER DAY
     Route: 048
     Dates: start: 20130408, end: 20130501
  4. VOTRIENT [Suspect]
     Indication: SOFT TISSUE CANCER
     Dosage: 200MG PER DAY
     Route: 048
     Dates: start: 20130502

REACTIONS (3)
  - Pneumothorax [Recovering/Resolving]
  - Platelet count decreased [Recovering/Resolving]
  - Urethritis [Recovering/Resolving]
